FAERS Safety Report 18658920 (Version 1)
Quarter: 2020Q4

REPORT INFORMATION
  Report Type: Report from Study
  Country: None (occurrence: KR)
  Receive Date: 20201223
  Receipt Date: 20201223
  Transmission Date: 20210114
  Serious: Yes (Hospitalization)
  Sender: FDA-Public Use
  Company Number: KR-XTTRIUM LABORATORIES, INC-2103427

PATIENT

DRUGS (1)
  1. OTHER NON-US PRODUCT [Suspect]
     Active Substance: UNSPECIFIED INGREDIENT

REACTIONS (4)
  - Nosocomial infection [None]
  - Product contamination [None]
  - Sepsis [Unknown]
  - Product use issue [None]

NARRATIVE: CASE EVENT DATE: 20131010
